FAERS Safety Report 10057200 (Version 2)
Quarter: 2014Q2

REPORT INFORMATION
  Report Type: Report from Study
  Country: US (occurrence: US)
  Receive Date: 20140403
  Receipt Date: 20140403
  Transmission Date: 20141212
  Serious: Yes (Hospitalization, Other)
  Sender: FDA-Public Use
  Company Number: US-AMGEN-USACT2013081154

PATIENT
  Age: 61 Year
  Sex: Male

DRUGS (20)
  1. AMG 416 [Suspect]
     Indication: HYPERPARATHYROIDISM SECONDARY
     Dosage: UNK
     Route: 065
  2. SENSIPAR [Suspect]
     Indication: HYPERPARATHYROIDISM SECONDARY
     Dosage: 60 MG, QD
     Route: 048
     Dates: start: 20120608, end: 20131106
  3. EPOGEN [Concomitant]
     Dosage: 6600 UNIT, TID
     Route: 058
     Dates: start: 20131010
  4. ARANESP [Concomitant]
     Dosage: 60 MUG, QWK
     Route: 058
  5. CLONIDINE [Concomitant]
     Indication: HYPERTENSION
     Dosage: 0.3 MG, QD
     Route: 048
     Dates: start: 20120608
  6. NEPHROCAPS                         /01801401/ [Concomitant]
     Indication: SUPPLEMENTATION THERAPY
     Dosage: 1 UNK, QD
     Route: 048
     Dates: start: 20120607
  7. COLACE [Concomitant]
     Indication: CONSTIPATION
     Dosage: 100 MG, BID
     Route: 048
     Dates: start: 20121201
  8. OMEPRAZOLE [Concomitant]
     Indication: GASTROOESOPHAGEAL REFLUX DISEASE
     Dosage: 20 MG, QD
     Route: 048
     Dates: start: 20121201
  9. FOLIC ACID [Concomitant]
     Indication: SUPPLEMENTATION THERAPY
     Dosage: 1 MG, QD
     Route: 048
     Dates: start: 20121201
  10. RENAGEL                            /01459901/ [Concomitant]
     Indication: BLOOD PHOSPHORUS ABNORMAL
     Dosage: 800 MG, WITH MEALS
     Route: 048
     Dates: start: 20120607
  11. KEPPRA [Concomitant]
     Indication: CONVULSION
     Dosage: 500 MG, QD
     Route: 048
     Dates: start: 20120608
  12. LISINOPRIL [Concomitant]
     Indication: HYPERTENSION
     Dosage: 20 MG, QD
     Route: 048
     Dates: start: 20121201
  13. HECTOROL [Concomitant]
     Indication: VITAMIN D
     Dosage: 3.0 MUG, TID
     Route: 042
     Dates: start: 20130913, end: 20131204
  14. DULCOLAX                           /00064401/ [Concomitant]
     Dosage: 10 MG, QD
     Route: 054
  15. BENADRYL                           /00000402/ [Concomitant]
     Dosage: 25 MG, EVERY 8 HOURS AS NECESSARY
     Route: 048
  16. NEURONTIN [Concomitant]
     Dosage: 100 MG, QD
     Route: 048
  17. VICODIN [Concomitant]
     Indication: PAIN
     Dosage: UNK UNK, AS NECESSARY EVERY 6 HOURS
  18. NOVOLOG [Concomitant]
     Dosage: 2-10 UNIT, BID
     Route: 058
  19. ZOFRAN                             /00955301/ [Concomitant]
     Dosage: UNK UNK, TID AS NEEDED
  20. RENVELA [Concomitant]
     Dosage: 800 MG, TID
     Route: 048

REACTIONS (1)
  - Anaemia [Recovered/Resolved]
